FAERS Safety Report 19014660 (Version 2)
Quarter: 2021Q1

REPORT INFORMATION
  Report Type: Spontaneous
  Country: US (occurrence: US)
  Receive Date: 20210316
  Receipt Date: 20210331
  Transmission Date: 20210420
  Serious: No
  Sender: FDA-Public Use
  Company Number: US-JNJFOC-20210324454

PATIENT
  Sex: Male

DRUGS (2)
  1. SIMPONI ARIA [Suspect]
     Active Substance: GOLIMUMAB
     Indication: RHEUMATOID ARTHRITIS
     Route: 042
  2. SIMPONI [Suspect]
     Active Substance: GOLIMUMAB
     Indication: RHEUMATOID ARTHRITIS
     Route: 058

REACTIONS (7)
  - Swelling [Unknown]
  - Musculoskeletal stiffness [Unknown]
  - Discomfort [Unknown]
  - Pain [Unknown]
  - Therapeutic product effect decreased [Unknown]
  - Product use issue [Unknown]
  - Off label use [Unknown]
